FAERS Safety Report 11927918 (Version 2)
Quarter: 2016Q2

REPORT INFORMATION
  Report Type: Report from Study
  Country: BR (occurrence: BR)
  Receive Date: 20160119
  Receipt Date: 20160516
  Transmission Date: 20160815
  Serious: Yes (Hospitalization)
  Sender: FDA-Public Use
  Company Number: PHHY2016BR005601

PATIENT
  Sex: Female
  Weight: 75 kg

DRUGS (1)
  1. ACLASTA [Suspect]
     Active Substance: ZOLEDRONIC ACID
     Indication: OSTEOPOROSIS
     Dosage: 5 MG, Q12MO
     Route: 042
     Dates: start: 20150408

REACTIONS (11)
  - Blood potassium increased [Recovered/Resolved]
  - Gingival cyst [Unknown]
  - Malaise [Unknown]
  - Pain [Not Recovered/Not Resolved]
  - Gingival swelling [Unknown]
  - Noninfective gingivitis [Unknown]
  - Post procedural complication [Unknown]
  - Urinary tract infection [Recovered/Resolved]
  - Blood sodium decreased [Recovered/Resolved]
  - Pruritus generalised [Not Recovered/Not Resolved]
  - Insomnia [Unknown]
